FAERS Safety Report 16787119 (Version 3)
Quarter: 2019Q3

REPORT INFORMATION
  Report Type: Report from Study
  Country: CZ (occurrence: CZ)
  Receive Date: 20190909
  Receipt Date: 20190923
  Transmission Date: 20191005
  Serious: Yes (Hospitalization)
  Sender: FDA-Public Use
  Company Number: CZ-PFIZER INC-2019385892

PATIENT
  Age: 28 Year
  Sex: Female
  Weight: 53 kg

DRUGS (16)
  1. METHYLPREDNISOLONE. [Suspect]
     Active Substance: METHYLPREDNISOLONE
     Dosage: 100 MG, 1X/DAY
     Route: 048
     Dates: start: 20190218, end: 20190218
  2. METHYLPREDNISOLONE. [Suspect]
     Active Substance: METHYLPREDNISOLONE
     Dosage: 40 MG, 1X/DAY
     Route: 048
     Dates: start: 20190220, end: 20190220
  3. HYDROCORTISONE. [Concomitant]
     Active Substance: HYDROCORTISONE
     Dosage: UNK
     Dates: start: 20181119
  4. BLINDED THERAPY [Suspect]
     Active Substance: INVESTIGATIONAL PRODUCT
     Indication: ACUTE GRAFT VERSUS HOST DISEASE
     Dosage: 100 MG, 1X/DAY
     Route: 048
     Dates: start: 20190206
  5. VALACICLOVIR [Concomitant]
     Active Substance: VALACYCLOVIR HYDROCHLORIDE
     Dosage: UNK
     Dates: start: 20181031
  6. OMEPRAZOLE. [Concomitant]
     Active Substance: OMEPRAZOLE
     Dosage: UNK
     Dates: start: 20190220
  7. PREDNISONE. [Suspect]
     Active Substance: PREDNISONE
     Indication: ACUTE GRAFT VERSUS HOST DISEASE
     Dosage: 20 MG, 1X/DAY
     Route: 048
     Dates: start: 20190220, end: 20190220
  8. TACROLIMUS. [Concomitant]
     Active Substance: TACROLIMUS
     Dosage: UNK
     Dates: start: 20181016
  9. TRIMETHOPRIM. [Concomitant]
     Active Substance: TRIMETHOPRIM
     Dosage: UNK
     Dates: start: 20190312
  10. METHYLPREDNISOLONE SODIUM SUCCINATE. [Suspect]
     Active Substance: METHYLPREDNISOLONE SODIUM SUCCINATE
     Indication: ACUTE GRAFT VERSUS HOST DISEASE
     Dosage: 40 MG, 2X/DAY
     Route: 042
     Dates: start: 20190219, end: 20190219
  11. PREDNISONE. [Suspect]
     Active Substance: PREDNISONE
     Dosage: 60 MG, 2X/DAY
     Route: 048
     Dates: start: 20190226, end: 20190304
  12. PREDNISONE. [Suspect]
     Active Substance: PREDNISONE
     Dosage: 40 MG, 2X/DAY
     Route: 048
     Dates: start: 20190221, end: 20190225
  13. PREDNISONE. [Suspect]
     Active Substance: PREDNISONE
     Dosage: 20 MG, 1X/DAY
     Route: 048
     Dates: start: 20190312, end: 20190318
  14. IVABRADINA [Concomitant]
     Active Substance: IVABRADINE
     Dosage: UNK
     Dates: start: 20190430
  15. METHYLPREDNISOLONE. [Suspect]
     Active Substance: METHYLPREDNISOLONE
     Indication: ACUTE GRAFT VERSUS HOST DISEASE
     Dosage: 60 MG, 2X/DAY
     Route: 048
     Dates: start: 20190206, end: 20190217
  16. PREDNISONE. [Suspect]
     Active Substance: PREDNISONE
     Dosage: 40 MG, 2X/DAY
     Route: 048
     Dates: start: 20190305, end: 20190311

REACTIONS (1)
  - Viral haemorrhagic cystitis [Recovered/Resolved]

NARRATIVE: CASE EVENT DATE: 20190504
